FAERS Safety Report 20961216 (Version 2)
Quarter: 2022Q3

REPORT INFORMATION
  Report Type: Spontaneous
  Country: ES (occurrence: ES)
  Receive Date: 20220615
  Receipt Date: 20220701
  Transmission Date: 20221027
  Serious: Yes (Other)
  Sender: FDA-Public Use
  Company Number: ES-TEVA-2022-ES-2045353

PATIENT
  Age: 61 Year
  Sex: Male

DRUGS (3)
  1. TOBRAMYCIN [Suspect]
     Active Substance: TOBRAMYCIN
     Indication: Burkholderia cepacia complex infection
     Dosage: 600 MILLIGRAM DAILY; IN CYCLES OF 28 DAYS
     Route: 050
     Dates: start: 202108
  2. VALGANCICLOVIR [Suspect]
     Active Substance: VALGANCICLOVIR
     Indication: Product used for unknown indication
     Route: 065
  3. CEFTAZIDIME [Suspect]
     Active Substance: CEFTAZIDIME
     Indication: Burkholderia cepacia complex infection
     Dosage: 4 GRAM DAILY;
     Route: 050

REACTIONS (5)
  - Drug ineffective [Unknown]
  - Nephropathy toxic [Recovered/Resolved]
  - Renal failure [Recovered/Resolved]
  - Chronic kidney disease [Recovered/Resolved]
  - Toxicity to various agents [Recovered/Resolved]
